FAERS Safety Report 9119241 (Version 1)
Quarter: 2013Q1

REPORT INFORMATION
  Report Type: Spontaneous
  Country: IT (occurrence: None)
  Receive Date: 20130130
  Receipt Date: 20130130
  Transmission Date: 20140127
  Serious: Yes (Hospitalization)
  Sender: FDA-Public Use
  Company Number: AUR-APL-2013-01057

PATIENT
  Age: 82 Year
  Sex: Female

DRUGS (4)
  1. CITALOPRAM (CITALOPRAM) [Suspect]
     Indication: PRODUCT USED FOR UNKNOWN INDICATION
     Route: 048
     Dates: start: 20120101, end: 20120904
  2. LANOXIN (DIGOXIN) [Concomitant]
  3. COUMADIN (WARFARIN SODIUM) [Concomitant]
  4. KOLIBRI (PARACETAMOL W/TRAMADOL) [Concomitant]

REACTIONS (4)
  - Agitation [None]
  - Anxiety [None]
  - Confusional state [None]
  - Fear [None]
